FAERS Safety Report 19189985 (Version 5)
Quarter: 2021Q3

REPORT INFORMATION
  Report Type: Spontaneous
  Country: CA (occurrence: CA)
  Receive Date: 20210428
  Receipt Date: 20210917
  Transmission Date: 20211014
  Serious: Yes (Hospitalization, Other)
  Sender: FDA-Public Use
  Company Number: CA-DRREDDYS-USA/CAN/21/0134915

PATIENT
  Age: 47 Year
  Sex: Female

DRUGS (49)
  1. RISPERIDONE. [Interacting]
     Active Substance: RISPERIDONE
     Indication: AFFECTIVE DISORDER
     Route: 048
  2. CYCLOBENZAPRINE. [Interacting]
     Active Substance: CYCLOBENZAPRINE
     Route: 048
  3. VALPROATE SEMISODIUM [Suspect]
     Active Substance: DIVALPROEX SODIUM
     Indication: AFFECTIVE DISORDER
     Route: 048
  4. ATENOLOL. [Concomitant]
     Active Substance: ATENOLOL
     Route: 048
  5. FLUOXETINE 40MG [Suspect]
     Active Substance: FLUOXETINE HYDROCHLORIDE
     Indication: MAJOR DEPRESSION
     Route: 048
  6. GABAPENTIN. [Interacting]
     Active Substance: GABAPENTIN
     Route: 048
  7. DIVALPROEX [Interacting]
     Active Substance: DIVALPROEX SODIUM
     Dosage: 500 MG AT BEDTIME
     Route: 048
  8. METHADONE [Interacting]
     Active Substance: METHADONE HYDROCHLORIDE
     Indication: DRUG USE DISORDER
     Route: 048
  9. NAPROXEN. [Concomitant]
     Active Substance: NAPROXEN
     Indication: PAIN
     Dosage: BID
     Route: 048
  10. ATENOLOL. [Concomitant]
     Active Substance: ATENOLOL
     Indication: HYPERTENSION
     Route: 048
  11. ATENOLOL. [Concomitant]
     Active Substance: ATENOLOL
     Route: 065
  12. SALBUTAMOL [Concomitant]
     Active Substance: ALBUTEROL
     Indication: CHRONIC OBSTRUCTIVE PULMONARY DISEASE
     Dosage: AS REQUIRED
     Route: 055
  13. QUETIAPINE. [Interacting]
     Active Substance: QUETIAPINE
     Indication: MAJOR DEPRESSION
     Dosage: 25 TO 50 MG IMMEDIATE?RELEASE 4 TIMES DAILY AS NEEDED
     Route: 048
  14. ESTRADIOL. [Concomitant]
     Active Substance: ESTRADIOL
     Route: 065
  15. NAPROXEN. [Concomitant]
     Active Substance: NAPROXEN
     Route: 048
  16. FLUOXETINE 40MG [Interacting]
     Active Substance: FLUOXETINE HYDROCHLORIDE
     Route: 048
  17. APO?DOXEPIN [Interacting]
     Active Substance: DOXEPIN
     Route: 048
  18. APO?DOXEPIN [Interacting]
     Active Substance: DOXEPIN
     Route: 048
  19. CYCLOBENZAPRINE. [Interacting]
     Active Substance: CYCLOBENZAPRINE
     Indication: PAIN
     Route: 048
  20. NAPROXEN. [Concomitant]
     Active Substance: NAPROXEN
     Route: 065
  21. TIOTROPIUM [Concomitant]
     Active Substance: TIOTROPIUM
     Indication: CHRONIC OBSTRUCTIVE PULMONARY DISEASE
     Route: 055
  22. SALBUTAMOL [Concomitant]
     Active Substance: ALBUTEROL
     Route: 065
  23. FLUOXETINE 40MG [Interacting]
     Active Substance: FLUOXETINE HYDROCHLORIDE
     Route: 048
  24. FLUOXETINE 40MG [Interacting]
     Active Substance: FLUOXETINE HYDROCHLORIDE
     Route: 048
  25. APO?DOXEPIN [Interacting]
     Active Substance: DOXEPIN
     Indication: MAJOR DEPRESSION
     Route: 048
  26. DIVALPROEX [Interacting]
     Active Substance: DIVALPROEX SODIUM
     Indication: AFFECTIVE DISORDER
     Dosage: 250 MG IN THE MORNING
     Route: 048
  27. ATENOLOL. [Concomitant]
     Active Substance: ATENOLOL
     Route: 048
  28. FLUOXETINE 40MG [Interacting]
     Active Substance: FLUOXETINE HYDROCHLORIDE
     Route: 048
  29. FLUOXETINE 40MG [Interacting]
     Active Substance: FLUOXETINE HYDROCHLORIDE
     Route: 048
  30. FLUOXETINE 40MG [Interacting]
     Active Substance: FLUOXETINE HYDROCHLORIDE
     Route: 048
  31. APO?DOXEPIN [Interacting]
     Active Substance: DOXEPIN
     Route: 048
  32. LORAZEPAM. [Interacting]
     Active Substance: LORAZEPAM
     Indication: WITHDRAWAL SYNDROME
     Dosage: 1 TO 2 MG PO 4 TIMES DAILY AS NEEDED
     Route: 048
  33. CYCLOBENZAPRINE. [Interacting]
     Active Substance: CYCLOBENZAPRINE
     Route: 048
  34. QUETIAPINE. [Interacting]
     Active Substance: QUETIAPINE
     Route: 065
  35. ESTRADIOL. [Concomitant]
     Active Substance: ESTRADIOL
     Indication: ENDOMETRIOSIS
     Route: 048
  36. TIOTROPIUM [Concomitant]
     Active Substance: TIOTROPIUM
     Route: 065
  37. SALBUTAMOL [Concomitant]
     Active Substance: ALBUTEROL
     Dosage: AS REQUIRED
  38. LORAZEPAM. [Interacting]
     Active Substance: LORAZEPAM
     Route: 048
  39. VALPROATE SEMISODIUM [Suspect]
     Active Substance: DIVALPROEX SODIUM
     Route: 048
  40. FUROSEMIDE. [Concomitant]
     Active Substance: FUROSEMIDE
     Route: 065
  41. FLUOXETINE 40MG [Interacting]
     Active Substance: FLUOXETINE HYDROCHLORIDE
     Route: 048
  42. GABAPENTIN. [Interacting]
     Active Substance: GABAPENTIN
     Indication: PAIN
     Route: 048
  43. DIVALPROEX [Interacting]
     Active Substance: DIVALPROEX SODIUM
     Route: 048
  44. QUETIAPINE. [Interacting]
     Active Substance: QUETIAPINE
     Dosage: EXTENDED?RELEASE AT BEDTIME
     Route: 048
  45. QUETIAPINE. [Interacting]
     Active Substance: QUETIAPINE
     Route: 048
  46. NAPROXEN. [Concomitant]
     Active Substance: NAPROXEN
     Route: 048
  47. ATENOLOL. [Concomitant]
     Active Substance: ATENOLOL
     Route: 065
  48. FUROSEMIDE. [Concomitant]
     Active Substance: FUROSEMIDE
     Indication: OEDEMA PERIPHERAL
     Dosage: ONCE DAILY
     Route: 048
  49. FUROSEMIDE. [Concomitant]
     Active Substance: FUROSEMIDE
     Route: 048

REACTIONS (4)
  - Depressed level of consciousness [Recovering/Resolving]
  - Toxicity to various agents [Recovering/Resolving]
  - Respiratory depression [Recovering/Resolving]
  - Drug interaction [Recovering/Resolving]
